FAERS Safety Report 5572413-6 (Version None)
Quarter: 2007Q4

REPORT INFORMATION
  Report Type: 
  Country: None (occurrence: None)
  Receive Date: 20071222
  Receipt Date: 20071212
  Transmission Date: 20080405
  Serious: Yes (Other)
  Sender: FDA-Public Use
  Company Number: US-PFIZER INC-2007087935

PATIENT
  Sex: Female
  Weight: 77.1 kg

DRUGS (3)
  1. CHANTIX [Suspect]
     Indication: SMOKING CESSATION THERAPY
  2. ATENOLOL [Concomitant]
     Indication: HYPERTENSION
  3. TRAZODONE HCL [Concomitant]

REACTIONS (8)
  - CONFUSIONAL STATE [None]
  - DIZZINESS [None]
  - DYSGRAPHIA [None]
  - EMOTIONAL DISORDER [None]
  - HEADACHE [None]
  - IMPAIRED SELF-CARE [None]
  - SPEECH DISORDER [None]
  - VOMITING [None]
